FAERS Safety Report 11074021 (Version 1)
Quarter: 2015Q2

REPORT INFORMATION
  Report Type: Spontaneous
  Country: US (occurrence: US)
  Receive Date: 20150429
  Receipt Date: 20150429
  Transmission Date: 20150821
  Serious: No
  Sender: FDA-Public Use
  Company Number: US-ASTRAZENECA-2015SE38306

PATIENT
  Sex: Female
  Weight: 86.2 kg

DRUGS (4)
  1. FARXIGA [Concomitant]
     Active Substance: DAPAGLIFLOZIN PROPANEDIOL
  2. DIFLUCAN [Concomitant]
     Active Substance: FLUCONAZOLE
  3. BYDUREON [Suspect]
     Active Substance: EXENATIDE
     Indication: DIABETES MELLITUS
     Route: 058
  4. METORMIN [Concomitant]

REACTIONS (2)
  - Fungal infection [Unknown]
  - Glycosylated haemoglobin increased [Unknown]
